FAERS Safety Report 8904516 (Version 1)
Quarter: 2012Q4

REPORT INFORMATION
  Report Type: 
  Country: US (occurrence: US)
  Receive Date: 20121110
  Receipt Date: 20121110
  Transmission Date: 20130627
  Serious: No
  Sender: FDA-Public Use
  Company Number: US-009507513-1211USA004099

PATIENT
  Sex: Male

DRUGS (2)
  1. RIBAVIRIN [Suspect]
     Indication: HEPATITIS C
     Dosage: UNK
     Dates: start: 19990101, end: 19990430
  2. INTRON A [Suspect]
     Indication: HEPATITIS C
     Dosage: UNK, q3w
     Dates: start: 19990101, end: 19990430

REACTIONS (1)
  - Influenza like illness [Unknown]
